FAERS Safety Report 11092360 (Version 2)
Quarter: 2016Q1

REPORT INFORMATION
  Report Type: Spontaneous
  Country: FR (occurrence: FR)
  Receive Date: 20150506
  Receipt Date: 20160310
  Transmission Date: 20160525
  Serious: Yes (Hospitalization)
  Sender: FDA-Public Use
  Company Number: FR-009507513-1505FRA000124

PATIENT
  Age: 66 Year
  Sex: Male

DRUGS (14)
  1. IBRUTINIB [Concomitant]
     Active Substance: IBRUTINIB
     Dosage: UNK
  2. SERESTA [Concomitant]
     Active Substance: OXAZEPAM
     Dosage: UNK
  3. BACTRIM [Suspect]
     Active Substance: SULFAMETHOXAZOLE\TRIMETHOPRIM
     Dosage: UNK
     Dates: start: 20140808, end: 20140919
  4. TOPALGIC (SUPROFEN) [Concomitant]
     Active Substance: SUPROFEN
     Dosage: UNK
  5. TAZOCILLINE [Suspect]
     Active Substance: PIPERACILLIN SODIUM\TAZOBACTAM SODIUM
     Dosage: UNK
     Dates: start: 20140810, end: 20140818
  6. INEXIUM (ESOMEPRAZOLE SODIUM) [Concomitant]
     Active Substance: ESOMEPRAZOLE SODIUM
     Dosage: UNK
  7. CHONDROSULF [Concomitant]
     Active Substance: CHONDROITIN SULFATE (CHICKEN)
     Dosage: UNK
  8. VALACYCLOVIR HYDROCHLORIDE. [Concomitant]
     Active Substance: VALACYCLOVIR HYDROCHLORIDE
     Dosage: UNK
  9. ZYLORIC [Concomitant]
     Active Substance: ALLOPURINOL
     Dosage: UNK
  10. TIENAM 500MG, POUDRE ET SOLUTION POUR USAGE PARENTERAL (IM) [Suspect]
     Active Substance: CILASTATIN SODIUM\IMIPENEM
     Dosage: UNK
     Dates: start: 20140918, end: 20140919
  11. FENOFIBRATE. [Concomitant]
     Active Substance: FENOFIBRATE
     Dosage: UNK
  12. TEMERIT [Concomitant]
     Active Substance: NEBIVOLOL
     Dosage: UNK
  13. SEROPLEX [Concomitant]
     Active Substance: ESCITALOPRAM OXALATE
     Dosage: UNK
  14. OMACOR [Concomitant]
     Active Substance: OMEGA-3-ACID ETHYL ESTERS
     Dosage: UNK

REACTIONS (1)
  - Amyotrophy [Unknown]

NARRATIVE: CASE EVENT DATE: 201409
